FAERS Safety Report 10237111 (Version 1)
Quarter: 2014Q2

REPORT INFORMATION
  Report Type: Spontaneous
  Country: US (occurrence: US)
  Receive Date: 20140613
  Receipt Date: 20140613
  Transmission Date: 20141212
  Serious: Yes (Other)
  Sender: FDA-Public Use
  Company Number: US-ASTRAZENECA-2014SE40425

PATIENT
  Age: 78 Year
  Sex: Male
  Weight: 99.8 kg

DRUGS (6)
  1. SYMBICORT [Suspect]
     Indication: ASTHMA
     Dosage: UNKNOWN DOSE, TWO TIMES A DAY
     Route: 055
     Dates: end: 20140514
  2. SYMBICORT [Suspect]
     Indication: CHRONIC OBSTRUCTIVE PULMONARY DISEASE
     Dosage: UNKNOWN DOSE, TWO TIMES A DAY
     Route: 055
     Dates: end: 20140514
  3. TIKOSYN [Suspect]
     Route: 048
     Dates: start: 2013
  4. SPIRIVA [Concomitant]
     Indication: ASTHMA
  5. SPIRIVA [Concomitant]
     Indication: CHRONIC OBSTRUCTIVE PULMONARY DISEASE
  6. UNSPECIFIED MEDICATIONS [Concomitant]
     Indication: ADVERSE REACTION

REACTIONS (2)
  - Fungal infection [Unknown]
  - Hypotension [Unknown]
